FAERS Safety Report 22875881 (Version 2)
Quarter: 2023Q4

REPORT INFORMATION
  Report Type: Spontaneous
  Country: SY (occurrence: None)
  Receive Date: 20230829
  Receipt Date: 20231020
  Transmission Date: 20240110
  Serious: Yes (Other)
  Sender: FDA-Public Use
  Company Number: SY-ROCHE-3410291

PATIENT
  Sex: Male

DRUGS (1)
  1. HEMLIBRA [Suspect]
     Active Substance: EMICIZUMAB-KXWH
     Indication: Factor VIII deficiency
     Route: 065

REACTIONS (2)
  - Hepatitis C [Recovered/Resolved]
  - Suspected transmission of an infectious agent via product [Unknown]
